FAERS Safety Report 16960233 (Version 1)
Quarter: 2019Q4

REPORT INFORMATION
  Report Type: Report from Study
  Country: None (occurrence: GB)
  Receive Date: 20191025
  Receipt Date: 20191025
  Transmission Date: 20200122
  Serious: Yes (Hospitalization)
  Sender: FDA-Public Use
  Company Number: GB-ABBVIE-19K-167-2974380-00

PATIENT
  Age: 70 Year
  Sex: Male

DRUGS (2)
  1. DUODOPA [Suspect]
     Active Substance: CARBIDOPA\LEVODOPA
     Dosage: 100ML CASSETTE DAILY
     Route: 050
     Dates: start: 201910
  2. DUODOPA [Suspect]
     Active Substance: CARBIDOPA\LEVODOPA
     Indication: PARKINSON^S DISEASE
     Dosage: 100ML CASSETTE DAILY??5MG/1ML??20MG/1ML
     Route: 050
     Dates: end: 201910

REACTIONS (5)
  - Incorrect dose administered [Unknown]
  - Tremor [Unknown]
  - On and off phenomenon [Unknown]
  - Inappropriate schedule of product administration [Unknown]
  - Cholecystectomy [Unknown]

NARRATIVE: CASE EVENT DATE: 2019
